FAERS Safety Report 11606376 (Version 6)
Quarter: 2016Q1

REPORT INFORMATION
  Report Type: Spontaneous
  Country: US (occurrence: US)
  Receive Date: 20151007
  Receipt Date: 20160203
  Transmission Date: 20160525
  Serious: No
  Sender: FDA-Public Use
  Company Number: US-GLAXOSMITHKLINE-US2015GSK124418

PATIENT
  Age: 65 Year
  Sex: Female

DRUGS (2)
  1. TANZEUM [Suspect]
     Active Substance: ALBIGLUTIDE
     Dosage: 30 MG, WE
  2. TANZEUM [Suspect]
     Active Substance: ALBIGLUTIDE
     Indication: TYPE 2 DIABETES MELLITUS
     Dosage: 30 MG, WE
     Route: 042
     Dates: start: 201505

REACTIONS (12)
  - Device use error [Unknown]
  - Musculoskeletal pain [Not Recovered/Not Resolved]
  - Device breakage [Unknown]
  - Blood glucose abnormal [Unknown]
  - Pruritus [Unknown]
  - Pain in extremity [Unknown]
  - Rash [Unknown]
  - Nervousness [Unknown]
  - Arthropod bite [Recovered/Resolved]
  - Back pain [Unknown]
  - Coccydynia [Unknown]
  - Drug dose omission [Unknown]

NARRATIVE: CASE EVENT DATE: 201507
